FAERS Safety Report 9467648 (Version 1)
Quarter: 2013Q3

REPORT INFORMATION
  Report Type: Spontaneous
  Country: US (occurrence: None)
  Receive Date: 20130819
  Receipt Date: 20130819
  Transmission Date: 20140515
  Serious: Yes (Disabling)
  Sender: FDA-Public Use
  Company Number: None

PATIENT
  Age: 47 Year
  Sex: Female
  Weight: 104.33 kg

DRUGS (1)
  1. CIPRO [Suspect]
     Indication: INFECTION
     Dosage: 1 PILL  TWICE DAILY  TAKEN BY MOUTH?6X OVER 18 MONTHS
     Route: 048

REACTIONS (3)
  - Hypoaesthesia [None]
  - Neuralgia [None]
  - No therapeutic response [None]
